FAERS Safety Report 18725904 (Version 1)
Quarter: 2021Q1

REPORT INFORMATION
  Report Type: Report from Study
  Country: IE (occurrence: IE)
  Receive Date: 20210111
  Receipt Date: 20210111
  Transmission Date: 20210419
  Serious: Yes (Other)
  Sender: FDA-Public Use
  Company Number: IE-IPSEN BIOPHARMACEUTICALS, INC.-2020-21528

PATIENT
  Age: 75 Year
  Sex: Female

DRUGS (8)
  1. COVERSYL [Concomitant]
     Active Substance: PERINDOPRIL
     Dosage: ONCE DAILY
     Route: 050
  2. SOMATULINE AUTOGEL [Suspect]
     Active Substance: LANREOTIDE ACETATE
     Indication: NEUROENDOCRINE TUMOUR
     Route: 058
     Dates: start: 20201009
  3. DIAMICRON [Concomitant]
     Active Substance: GLICLAZIDE
     Dosage: ONCE DAILY
     Route: 050
  4. LANTUS [Concomitant]
     Active Substance: INSULIN GLARGINE
     Dosage: ONCE DAILY
     Route: 050
  5. GABAPENTIN. [Concomitant]
     Active Substance: GABAPENTIN
     Dosage: ONCE DAILY
     Route: 050
  6. COVERSYL [Concomitant]
     Active Substance: PERINDOPRIL
     Dosage: ONCE DAILY
     Route: 050
  7. JANUMET [Concomitant]
     Active Substance: METFORMIN HYDROCHLORIDE\SITAGLIPTIN PHOSPHATE
     Dosage: BD
     Route: 050
  8. ASPRIN [Concomitant]
     Active Substance: ASPIRIN
     Dosage: ONCE DAILY
     Route: 050

REACTIONS (13)
  - Restless legs syndrome [Not Recovered/Not Resolved]
  - Asthenia [Recovered/Resolved]
  - Diarrhoea [Recovered/Resolved]
  - Fatigue [Not Recovered/Not Resolved]
  - Unresponsive to stimuli [Recovered/Resolved]
  - Circulatory collapse [Recovered/Resolved]
  - Headache [Not Recovered/Not Resolved]
  - Flushing [Recovered/Resolved]
  - Hyperhidrosis [Not Recovered/Not Resolved]
  - Pruritus [Not Recovered/Not Resolved]
  - Pain in extremity [Not Recovered/Not Resolved]
  - Product dose omission issue [Unknown]
  - Nausea [Not Recovered/Not Resolved]

NARRATIVE: CASE EVENT DATE: 20201010
